FAERS Safety Report 7656381-9 (Version None)
Quarter: 2011Q3

REPORT INFORMATION
  Report Type: 
  Country: None (occurrence: None)
  Receive Date: 20110804
  Receipt Date: 20110729
  Transmission Date: 20111222
  Serious: Yes (Congenital Anomaly)
  Sender: FDA-Public Use
  Company Number: US-VIIV HEALTHCARE LIMITED-A0936212A

PATIENT
  Age: 5 Month
  Sex: Female

DRUGS (2)
  1. COMBIVIR [Suspect]
     Indication: HIV INFECTION
     Dosage: 2TAB PER DAY
     Route: 064
     Dates: start: 20101015
  2. LOPINAVIR/RITONAVIR [Suspect]
     Indication: HIV INFECTION
     Dosage: 6TAB PER DAY
     Route: 064
     Dates: start: 20101015

REACTIONS (2)
  - MATERNAL EXPOSURE DURING PREGNANCY [None]
  - INTESTINAL CYST [None]
